FAERS Safety Report 7575319-6 (Version None)
Quarter: 2011Q2

REPORT INFORMATION
  Report Type: 
  Country: None (occurrence: None)
  Receive Date: 20110627
  Receipt Date: 20110617
  Transmission Date: 20111010
  Serious: Yes (Other)
  Sender: FDA-Public Use
  Company Number: US-US-EMD SERONO, INC.-7066262

PATIENT
  Sex: Female

DRUGS (4)
  1. ELAVIL [Concomitant]
     Indication: DEPRESSION
     Dates: end: 20110301
  2. REBIF [Suspect]
     Route: 058
     Dates: start: 20110616
  3. REBIF [Suspect]
     Indication: MULTIPLE SCLEROSIS
     Dates: end: 20110310
  4. ELAVIL [Concomitant]
     Indication: PAIN
     Dates: start: 20110301

REACTIONS (2)
  - ABORTION SPONTANEOUS [None]
  - DRUG EXPOSURE DURING PREGNANCY [None]
